FAERS Safety Report 16703752 (Version 2)
Quarter: 2019Q3

REPORT INFORMATION
  Report Type: Spontaneous
  Country: US (occurrence: US)
  Receive Date: 20190814
  Receipt Date: 20190930
  Transmission Date: 20191004
  Serious: Yes (Other)
  Sender: FDA-Public Use
  Company Number: US-PFIZER INC-2019349174

PATIENT
  Age: 68 Year
  Sex: Female

DRUGS (1)
  1. ADRIAMYCIN [Suspect]
     Active Substance: DOXORUBICIN HYDROCHLORIDE
     Indication: BREAST CANCER FEMALE
     Dosage: 10 MG, UNK

REACTIONS (5)
  - Sinus rhythm [Unknown]
  - Urinary tract infection [Unknown]
  - Left atrial enlargement [Unknown]
  - Ventricular extrasystoles [Unknown]
  - Heart rate increased [Not Recovered/Not Resolved]

NARRATIVE: CASE EVENT DATE: 2017
